FAERS Safety Report 12950137 (Version 2)
Quarter: 2016Q4

REPORT INFORMATION
  Report Type: Spontaneous
  Country: CH (occurrence: CH)
  Receive Date: 20161117
  Receipt Date: 20161205
  Transmission Date: 20170207
  Serious: Yes (Other)
  Sender: FDA-Public Use
  Company Number: CH-JNJFOC-20161112155

PATIENT
  Age: 5 Decade
  Sex: Female
  Weight: 63 kg

DRUGS (2)
  1. IRFEN [Concomitant]
     Active Substance: IBUPROFEN
     Indication: PAIN
     Route: 048
  2. SIMPONI [Suspect]
     Active Substance: GOLIMUMAB
     Indication: ANKYLOSING SPONDYLITIS
     Route: 058
     Dates: start: 20161108, end: 20161108

REACTIONS (3)
  - Vertigo [Recovered/Resolved]
  - Circulatory collapse [Recovered/Resolved]
  - Abdominal pain [Recovered/Resolved]

NARRATIVE: CASE EVENT DATE: 20161108
